FAERS Safety Report 11205117 (Version 1)
Quarter: 2015Q2

REPORT INFORMATION
  Report Type: Spontaneous
  Country: US (occurrence: US)
  Receive Date: 20150622
  Receipt Date: 20150622
  Transmission Date: 20150821
  Serious: Yes (Life-Threatening, Hospitalization, Other)
  Sender: FDA-Public Use
  Company Number: US-MALLINCKRODT-T201502981

PATIENT
  Age: 79 Year
  Sex: Female
  Weight: 74 kg

DRUGS (25)
  1. LEVAQUIN [Concomitant]
     Active Substance: LEVOFLOXACIN
     Indication: PROPHYLAXIS
     Dosage: 750 MG, DAILY
     Route: 048
     Dates: start: 20141226
  2. ZOFRAN [Concomitant]
     Active Substance: ONDANSETRON HYDROCHLORIDE
     Indication: NAUSEA
     Dosage: 8 MG, ONCE
     Route: 048
     Dates: start: 20150317, end: 20150317
  3. ZOVIRAX [Concomitant]
     Active Substance: ACYCLOVIR
     Indication: PROPHYLAXIS
     Dosage: 400 MG, BID
     Route: 048
     Dates: start: 20141215
  4. MYLOTARG [Concomitant]
     Active Substance: GEMTUZUMAB OZOGAMICIN
     Indication: ACUTE MYELOID LEUKAEMIA
     Dosage: DAY 1 AND 15, 9 MG/M2
     Route: 042
     Dates: start: 20150317, end: 20150331
  5. SOLU-MEDROL [Concomitant]
     Active Substance: METHYLPREDNISOLONE SODIUM SUCCINATE
     Dosage: 50 MG Q6HRS
     Route: 042
     Dates: start: 20150317, end: 20150317
  6. BIOTIN [Concomitant]
     Active Substance: BIOTIN
     Dosage: 1 TABLET, TID
     Route: 048
     Dates: start: 20140327
  7. ZOLPIDEM [Concomitant]
     Active Substance: ZOLPIDEM\ZOLPIDEM TARTRATE
     Indication: SLEEP DISORDER
     Dosage: 6.25 MG, PRN
     Route: 048
     Dates: start: 20140224
  8. MICRO K [Concomitant]
     Indication: HYPOKALAEMIC SYNDROME
     Dosage: 20-40 MCG, PRN
     Route: 042
     Dates: start: 20150320
  9. NEXIUM [Concomitant]
     Active Substance: ESOMEPRAZOLE MAGNESIUM
     Indication: GASTROOESOPHAGEAL REFLUX DISEASE
     Dosage: 40 MG, DAILY
     Route: 048
     Dates: start: 20131024
  10. DIFLUCAN [Concomitant]
     Active Substance: FLUCONAZOLE
     Indication: PROPHYLAXIS
     Dosage: 200 MG, DAILY
     Route: 048
     Dates: start: 20141226
  11. MAGNESIUM OXIDE. [Concomitant]
     Active Substance: MAGNESIUM OXIDE
     Indication: SUPPLEMENTATION THERAPY
     Dosage: 400 MG, BID
     Route: 048
     Dates: start: 20150305
  12. ULTRAM [Concomitant]
     Active Substance: TRAMADOL HYDROCHLORIDE
     Indication: PAIN
     Dosage: 50 MG Q6HRS PRN
     Route: 048
     Dates: start: 20141120
  13. ZYLOPRIM [Concomitant]
     Active Substance: ALLOPURINOL
     Indication: TUMOUR LYSIS SYNDROME
     Dosage: 300 MG, DAILY
     Route: 048
     Dates: start: 20150317, end: 20150322
  14. BENADRYL [Suspect]
     Active Substance: DIPHENHYDRAMINE HYDROCHLORIDE
     Indication: PRODUCT USED FOR UNKNOWN INDICATION
     Dosage: 17 MG, ONCE
     Route: 048
     Dates: start: 20150317, end: 20150317
  15. ROXICODONE [Suspect]
     Active Substance: OXYCODONE HYDROCHLORIDE
     Indication: BACK PAIN
     Dosage: 5 MG, Q 6HRS, PRN
     Route: 048
     Dates: start: 20150305
  16. MAGNESIUM OXIDE. [Concomitant]
     Active Substance: MAGNESIUM OXIDE
     Dosage: 2 MG, PRN
     Route: 042
     Dates: start: 20150320
  17. COMPAZINE [Concomitant]
     Active Substance: PROCHLORPERAZINE MALEATE
     Indication: NAUSEA
     Dosage: 5 MG, Q 6HR PRN
     Route: 048
     Dates: start: 20141120
  18. TYLENOL [Concomitant]
     Active Substance: ACETAMINOPHEN
     Dosage: 650-1000 MG, ONCE
     Route: 048
     Dates: start: 20150317, end: 20150317
  19. LIDODERM [Concomitant]
     Active Substance: LIDOCAINE
     Indication: PAIN
     Dosage: 700 MG DAILY X12HRS
     Route: 062
     Dates: start: 20141120
  20. HYZAAR [Concomitant]
     Active Substance: HYDROCHLOROTHIAZIDE\LOSARTAN POTASSIUM
     Indication: HYPERTENSION
     Dosage: 1 (50/12.5 MG)TABLET DAILY
     Route: 048
     Dates: start: 20131024
  21. LIDOCAINE VISCOUS [Concomitant]
     Active Substance: LIDOCAINE HYDROCHLORIDE
     Indication: ORAL DISORDER
     Dosage: 30 ML, QID PRN
     Route: 048
     Dates: start: 20141120
  22. MULTIVITAMIN [Concomitant]
     Active Substance: VITAMINS
     Indication: SUPPLEMENTATION THERAPY
     Dosage: 1 TABLET DAILY
     Route: 048
     Dates: start: 20131212
  23. VITAMIN D3 [Concomitant]
     Active Substance: CHOLECALCIFEROL
     Indication: SUPPLEMENTATION THERAPY
     Dosage: 1 600MG/400 UNITS TABLET, BID
     Route: 048
     Dates: start: 20131212
  24. GLUCOSAMINE AND CHONDROITIN [Concomitant]
     Indication: SUPPLEMENTATION THERAPY
     Dosage: 1 (500/400 MG) TABLET, BID
     Route: 048
     Dates: start: 20131212
  25. LASIX [Concomitant]
     Active Substance: FUROSEMIDE
     Indication: OEDEMA
     Dosage: 10-20 MG, PRN
     Route: 042
     Dates: start: 20150319

REACTIONS (2)
  - Haemorrhage intracranial [Recovering/Resolving]
  - Cognitive disorder [Recovering/Resolving]

NARRATIVE: CASE EVENT DATE: 20150321
